FAERS Safety Report 5192716-7 (Version None)
Quarter: 2006Q4

REPORT INFORMATION
  Report Type: 
  Country: None (occurrence: None)
  Receive Date: 20061220
  Receipt Date: 20061205
  Transmission Date: 20070319
  Serious: Yes (Death, Hospitalization, Other)
  Sender: FDA-Public Use
  Company Number: 061120-0001040

PATIENT
  Age: 46 Year
  Sex: Female

DRUGS (3)
  1. ELSPAR [Suspect]
     Indication: ACUTE LYMPHOCYTIC LEUKAEMIA
     Dosage: 10000 IU/M**2; EVERY OTHER 2 OR 3 DAYS; IV
     Route: 042
  2. ANTHRACYCLINES [Concomitant]
  3. PREDNISONE TAB [Concomitant]

REACTIONS (1)
  - CEREBROVASCULAR ACCIDENT [None]
